FAERS Safety Report 25494444 (Version 1)
Quarter: 2025Q2

REPORT INFORMATION
  Report Type: Spontaneous
  Country: CN (occurrence: CN)
  Receive Date: 20250630
  Receipt Date: 20250630
  Transmission Date: 20250716
  Serious: Yes (Life-Threatening, Hospitalization, Other)
  Sender: BAYER HEALTHCARE PHARMACEUTICALS INC.
  Company Number: CN-BAYER-2025A085720

PATIENT
  Age: 56 Year
  Sex: Male
  Weight: 68 kg

DRUGS (1)
  1. ULTRAVIST [Suspect]
     Active Substance: IOPROMIDE
     Indication: Computerised tomogram
     Route: 042
     Dates: start: 20250625, end: 20250625

REACTIONS (8)
  - Anaphylactic shock [Recovering/Resolving]
  - Syncope [None]
  - Loss of consciousness [Recovered/Resolved]
  - Seizure [None]
  - Vision blurred [None]
  - Flushing [None]
  - Blood pressure decreased [Recovered/Resolved]
  - Conjunctival oedema [None]

NARRATIVE: CASE EVENT DATE: 20250625
